FAERS Safety Report 19804718 (Version 1)
Quarter: 2021Q3

REPORT INFORMATION
  Report Type: Spontaneous
  Country: FR (occurrence: FR)
  Receive Date: 20210908
  Receipt Date: 20210908
  Transmission Date: 20211014
  Serious: Yes (Other)
  Sender: FDA-Public Use
  Company Number: FR-PFIZER INC-202101114164

PATIENT
  Age: 51 Year
  Sex: Female

DRUGS (5)
  1. VENLAFAXINE HCL [Suspect]
     Active Substance: VENLAFAXINE HYDROCHLORIDE
     Dosage: 150 MG, 1X/DAY
     Route: 048
     Dates: start: 20210414
  2. DAFALGAN CODEINE [Suspect]
     Active Substance: ACETAMINOPHEN\CODEINE PHOSPHATE
     Dosage: 1 DF, 1X/DAY
     Route: 048
     Dates: start: 20210414
  3. HYDROXYZINE HYDROCHLORIDE. [Suspect]
     Active Substance: HYDROXYZINE HYDROCHLORIDE
     Dosage: 25 MG, 1X/DAY
     Route: 048
     Dates: start: 20210414
  4. THERALENE [Suspect]
     Active Substance: TRIMEPRAZINE
     Dosage: 100 DROP, 1X/DAY
     Route: 048
     Dates: start: 20210414
  5. BROMAZEPAM [Suspect]
     Active Substance: BROMAZEPAM
     Dosage: 24 MG, 1X/DAY
     Route: 048
     Dates: start: 20210414

REACTIONS (1)
  - Drug abuse [Not Recovered/Not Resolved]
